FAERS Safety Report 5477734-3 (Version None)
Quarter: 2007Q4

REPORT INFORMATION
  Report Type: 
  Country: None (occurrence: None)
  Receive Date: 20071005
  Receipt Date: 20070928
  Transmission Date: 20080405
  Serious: Yes (Hospitalization)
  Sender: FDA-Public Use
  Company Number: HQWYE381028SEP07

PATIENT
  Sex: Female

DRUGS (9)
  1. INIPOMP [Suspect]
     Dosage: UNKNOWN
     Route: 048
     Dates: start: 20070716, end: 20070101
  2. CARTREX [Suspect]
     Indication: SCIATICA
     Dosage: 100 MG
     Route: 048
     Dates: start: 20070716
  3. LYSANXIA [Concomitant]
     Dosage: ^DF^
     Route: 048
  4. ONCTOSE [Concomitant]
     Dosage: ^DF^
     Route: 062
     Dates: start: 20070728
  5. DAFALGAN [Concomitant]
     Dosage: ^DF^
     Route: 048
  6. ACETAMINOPHEN W/ PROPOXYPHENE HCL [Concomitant]
     Indication: ARTHRALGIA
     Dosage: ^DF^
     Route: 048
     Dates: start: 20070716
  7. PYOSTACINE [Concomitant]
     Dosage: ^DF^
     Route: 048
     Dates: start: 20070802, end: 20070809
  8. KETUM [Suspect]
     Indication: SCIATICA
     Dosage: ^DF^
     Route: 062
     Dates: start: 20070716, end: 20070727
  9. PIASCLEDINE [Concomitant]
     Dosage: ^DF^
     Route: 048

REACTIONS (1)
  - DERMATITIS BULLOUS [None]
